FAERS Safety Report 20136928 (Version 1)
Quarter: 2021Q4

REPORT INFORMATION
  Report Type: Spontaneous
  Country: DE (occurrence: DE)
  Receive Date: 20211201
  Receipt Date: 20211201
  Transmission Date: 20220303
  Serious: Yes (Hospitalization, Other)
  Sender: FDA-Public Use
  Company Number: DE-002147023-NVSC2021DE227307

PATIENT
  Sex: Female

DRUGS (2)
  1. AMLODIPINE [Suspect]
     Active Substance: AMLODIPINE BESYLATE
     Indication: Hypertension
     Dosage: UNK
     Route: 065
  2. LEVOTHYROXINE SODIUM\POTASSIUM IODIDE [Concomitant]
     Active Substance: LEVOTHYROXINE SODIUM\POTASSIUM IODIDE
     Indication: Thyroid disorder
     Dosage: UNK UNK, QD (1-0-0)
     Route: 065

REACTIONS (11)
  - Hypertension [Unknown]
  - Cardiac failure [Unknown]
  - Ear pain [Unknown]
  - Vision blurred [Unknown]
  - Apathy [Unknown]
  - Dyspnoea [Unknown]
  - Hyponatraemia [Unknown]
  - Abdominal pain [Unknown]
  - Nervousness [Unknown]
  - Malaise [Unknown]
  - Off label use [Unknown]

NARRATIVE: CASE EVENT DATE: 20210101
